FAERS Safety Report 5035307-0 (Version None)
Quarter: 2006Q2

REPORT INFORMATION
  Report Type: 
  Country: None (occurrence: None)
  Receive Date: 20060623
  Receipt Date: 20060623
  Transmission Date: 20061013
  Serious: No
  Sender: FDA-Public Use
  Company Number: None

PATIENT

DRUGS (1)
  1. GLUCOPHAGE XR [Suspect]
     Dosage: 500 MG TABLETS

REACTIONS (2)
  - FLUID RETENTION [None]
  - PHARMACEUTICAL PRODUCT COMPLAINT [None]
